FAERS Safety Report 7405193-X (Version None)
Quarter: 2011Q2

REPORT INFORMATION
  Report Type: 
  Country: None (occurrence: None)
  Receive Date: 20110411
  Receipt Date: 20110404
  Transmission Date: 20111010
  Serious: Yes (Other)
  Sender: FDA-Public Use
  Company Number: DE-BRISTOL-MYERS SQUIBB COMPANY-15650930

PATIENT
  Age: 75 Year
  Sex: Male

DRUGS (1)
  1. PRAVASTATIN SODIUM [Suspect]

REACTIONS (2)
  - INTERSTITIAL LUNG DISEASE [None]
  - DEPRESSION [None]
